FAERS Safety Report 6549213-3 (Version None)
Quarter: 2010Q1

REPORT INFORMATION
  Report Type: 
  Country: None (occurrence: None)
  Receive Date: 20100125
  Receipt Date: 20100114
  Transmission Date: 20100710
  Serious: Yes (Other)
  Sender: FDA-Public Use
  Company Number: US-JNJFOC-20100105960

PATIENT
  Sex: Female

DRUGS (2)
  1. DOXIL [Suspect]
     Indication: MULTIPLE MYELOMA
     Route: 042
  2. DECADRON [Concomitant]
     Route: 065

REACTIONS (3)
  - BLOOD CREATININE INCREASED [None]
  - BLOOD POTASSIUM INCREASED [None]
  - TUMOUR LYSIS SYNDROME [None]
